FAERS Safety Report 9900922 (Version 1)
Quarter: 2014Q1

REPORT INFORMATION
  Report Type: Spontaneous
  Country: US (occurrence: US)
  Receive Date: 20140217
  Receipt Date: 20140217
  Transmission Date: 20141002
  Serious: No
  Sender: FDA-Public Use
  Company Number: US-ABBVIE-13P-163-1155043-00

PATIENT
  Sex: Female

DRUGS (4)
  1. SIMCOR 500/40 [Suspect]
     Indication: BLOOD TRIGLYCERIDES INCREASED
     Dosage: 500/40
     Dates: start: 2011, end: 2012
  2. SIMCOR 500/40 [Suspect]
     Dates: start: 201309
  3. LISINOPRIL [Concomitant]
     Indication: PRODUCT USED FOR UNKNOWN INDICATION
  4. METFORMIN [Concomitant]
     Indication: PRODUCT USED FOR UNKNOWN INDICATION

REACTIONS (1)
  - Flushing [Recovered/Resolved]
